FAERS Safety Report 5991962-X (Version None)
Quarter: 2008Q4

REPORT INFORMATION
  Report Type: 
  Country: None (occurrence: None)
  Receive Date: 20081211
  Receipt Date: 20081203
  Transmission Date: 20090506
  Serious: Yes (Other)
  Sender: FDA-Public Use
  Company Number: ES-B.I. PHARMACEUTICALS,INC./RIDGEFIELD-2008-DE-07486GD

PATIENT
  Sex: Female

DRUGS (5)
  1. NEVIRAPINE [Suspect]
     Indication: HIV INFECTION
  2. STAVUDINE [Suspect]
     Indication: HIV INFECTION
  3. 3TC [Suspect]
     Indication: HIV INFECTION
  4. AMPRENAVIR [Suspect]
     Indication: HIV INFECTION
  5. RITONAVIR [Suspect]
     Indication: HIV INFECTION

REACTIONS (1)
  - OSTEOPOROSIS [None]
